FAERS Safety Report 8790290 (Version 1)
Quarter: 2012Q4

REPORT INFORMATION
  Report Type: 
  Country: IT (occurrence: IT)
  Receive Date: 20120917
  Receipt Date: 20120917
  Transmission Date: 20130627
  Serious: Yes (Death, Hospitalization, Other)
  Sender: FDA-Public Use
  Company Number: PHHY2012IT080222

PATIENT
  Age: 75 Year
  Sex: Male

DRUGS (11)
  1. METFORMIN [Suspect]
     Indication: DIABETES MELLITUS
     Dosage: 1850 mg
     Dates: start: 20110902, end: 20120902
  2. TRIATEC [Concomitant]
     Dosage: 2.5 mg, UNK
  3. CARDICOR [Concomitant]
     Dosage: 5 mg, UNK
  4. CORDARONE [Concomitant]
     Dosage: 200 mg, UNK
  5. LASIX [Concomitant]
     Dosage: 25 mg, UNK
  6. PANTORC [Concomitant]
     Dosage: 40 mg, UNK
  7. PLAVIX [Concomitant]
     Dosage: 75 mg, UNK
  8. OXYCONTIN [Concomitant]
     Dosage: 5 mg, UNK
  9. LYRICA [Concomitant]
     Dosage: 25 mg, UNK
  10. LANTUS [Concomitant]
     Dosage: 100 IU/ml, UNK
     Route: 058
  11. COUMADIN ^BOOTS^ [Concomitant]
     Dosage: 5 mg, UNK

REACTIONS (7)
  - Cardiac arrest [Fatal]
  - Lactic acidosis [Not Recovered/Not Resolved]
  - Dyspnoea [Not Recovered/Not Resolved]
  - Asthenia [Not Recovered/Not Resolved]
  - Myocardial infarction [Unknown]
  - Blood potassium increased [Unknown]
  - Blood creatinine increased [Unknown]
